FAERS Safety Report 7220217-0 (Version None)
Quarter: 2011Q1

REPORT INFORMATION
  Report Type: 
  Country: None (occurrence: None)
  Receive Date: 20110111
  Receipt Date: 20101231
  Transmission Date: 20110831
  Serious: Yes (Death)
  Sender: FDA-Public Use
  Company Number: US-MERCK-1101USA00209

PATIENT
  Age: 56 Year
  Sex: Female

DRUGS (11)
  1. ZESTRIL [Suspect]
     Route: 048
  2. CLONAZEPAM [Suspect]
     Route: 048
  3. TRAMADOL HYDROCHLORIDE [Suspect]
     Route: 048
  4. MELOXICAM [Suspect]
     Route: 048
  5. ZOCOR [Suspect]
     Route: 048
  6. METFORMIN [Suspect]
     Route: 048
  7. OXYCONTIN [Suspect]
     Route: 048
  8. VENLAFAXINE HYDROCHLORIDE [Suspect]
     Route: 048
  9. PROMETHAZINE [Suspect]
     Route: 048
  10. OXYCODONE [Suspect]
     Route: 048
  11. ALCOHOL [Suspect]
     Route: 048

REACTIONS (1)
  - TOXICITY TO VARIOUS AGENTS [None]
